FAERS Safety Report 4531181-7 (Version None)
Quarter: 2004Q4

REPORT INFORMATION
  Report Type: 
  Country: None (occurrence: None)
  Receive Date: 20041130
  Receipt Date: 20031002
  Transmission Date: 20050328
  Serious: Yes (Disabling, Other)
  Sender: FDA-Public Use
  Company Number: WAES 0310USA00397

PATIENT
  Sex: Female
  Weight: 71.6683 kg

DRUGS (1)
  1. FOSAMAX [Suspect]
     Indication: OSTEOPOROSIS PROPHYLAXIS
     Dosage: 70 MG /WKY/PO
     Route: 048

REACTIONS (1)
  - DIARRHOEA [None]
